FAERS Safety Report 6340060-4 (Version None)
Quarter: 2009Q3

REPORT INFORMATION
  Report Type: 
  Country: None (occurrence: None)
  Receive Date: 20090902
  Receipt Date: 20090824
  Transmission Date: 20100115
  Serious: Yes (Hospitalization)
  Sender: FDA-Public Use
  Company Number: 20097304

PATIENT
  Sex: Female

DRUGS (1)
  1. LIORESAL [Suspect]
     Indication: MUSCLE SPASTICITY
     Dosage: MCG, DAILY, SUBCUTANEOUS
     Route: 058

REACTIONS (3)
  - CONDITION AGGRAVATED [None]
  - DEVICE FAILURE [None]
  - MUSCLE SPASTICITY [None]
